FAERS Safety Report 6421817-8 (Version None)
Quarter: 2009Q4

REPORT INFORMATION
  Report Type: 
  Country: None (occurrence: None)
  Receive Date: 20091030
  Receipt Date: 20091019
  Transmission Date: 20100525
  Serious: Yes (Hospitalization)
  Sender: FDA-Public Use
  Company Number: B0598653A

PATIENT
  Age: 78 Year
  Sex: Female

DRUGS (8)
  1. DIGOXIN [Suspect]
  2. AMLODIPINE [Concomitant]
  3. LISINOPRIL [Concomitant]
  4. FUROSEMIDE [Concomitant]
  5. SPIRONOLACTONE [Concomitant]
  6. WARFARIN SODIUM [Concomitant]
  7. LANSOPRAZOLE [Concomitant]
  8. QUININE [Concomitant]

REACTIONS (4)
  - BRADYCARDIA [None]
  - HYPOTENSION [None]
  - SYNCOPE [None]
  - THERAPEUTIC AGENT TOXICITY [None]
